FAERS Safety Report 7769268-8 (Version None)
Quarter: 2011Q3

REPORT INFORMATION
  Report Type: 
  Country: None (occurrence: None)
  Receive Date: 20110922
  Receipt Date: 20110919
  Transmission Date: 20111222
  Serious: No
  Sender: FDA-Public Use
  Company Number: US-PFIZER INC-2010113618

PATIENT
  Sex: Male

DRUGS (7)
  1. AMBIEN [Concomitant]
     Dosage: UNK
  2. PROCARDIA XL [Suspect]
     Dosage: UNK
  3. TOPROL-XL [Concomitant]
     Dosage: UNK
  4. LOVAZA [Concomitant]
     Dosage: UNK
  5. VALSARTAN [Concomitant]
     Dosage: UNK
  6. SITAGLIPTIN PHOSPHATE [Concomitant]
     Dosage: UNK
  7. ZETIA [Concomitant]
     Dosage: UNK

REACTIONS (1)
  - DYSGEUSIA [None]
